FAERS Safety Report 5083553-2 (Version None)
Quarter: 2006Q3

REPORT INFORMATION
  Report Type: 
  Country: None (occurrence: None)
  Receive Date: 20060720
  Receipt Date: 20060428
  Transmission Date: 20061208
  Serious: Yes (Hospitalization)
  Sender: FDA-Public Use
  Company Number: 2006058762

PATIENT
  Age: 61 Year
  Sex: Male

DRUGS (2)
  1. CELEBREX [Suspect]
     Indication: ARTHRITIS
     Dosage: (2 IN 1 D)
     Dates: start: 20020101
  2. VIOXX [Suspect]
     Indication: ILL-DEFINED DISORDER

REACTIONS (4)
  - ABDOMINAL PAIN UPPER [None]
  - HYPERTENSION [None]
  - MYOCARDIAL INFARCTION [None]
  - NAUSEA [None]
